FAERS Safety Report 5337275-0 (Version None)
Quarter: 2007Q2

REPORT INFORMATION
  Report Type: 
  Country: None (occurrence: None)
  Receive Date: 20070529
  Receipt Date: 20070521
  Transmission Date: 20071010
  Serious: Yes (Hospitalization)
  Sender: FDA-Public Use
  Company Number: B0472134A

PATIENT
  Age: 81 Year
  Sex: Female
  Weight: 70 kg

DRUGS (2)
  1. ROSIGLITAZONE [Suspect]
     Dosage: 4MG PER DAY
     Route: 048
     Dates: start: 20010807
  2. GLUCOPHAGE [Concomitant]
     Dosage: 2.55G PER DAY
     Route: 048
     Dates: start: 19991101

REACTIONS (2)
  - HIP FRACTURE [None]
  - PNEUMONIA [None]
